FAERS Safety Report 5093068-3 (Version None)
Quarter: 2006Q3

REPORT INFORMATION
  Report Type: 
  Country: None (occurrence: None)
  Receive Date: 20060828
  Receipt Date: 20060814
  Transmission Date: 20061208
  Serious: Yes (Other)
  Sender: FDA-Public Use
  Company Number: 2006099506

PATIENT
  Age: 20 Year
  Sex: Female

DRUGS (2)
  1. IDAMYCIN [Suspect]
     Indication: ACUTE MYELOID LEUKAEMIA
     Dosage: 18 MG (1 IN 1 D), INTRAVENOUS
     Route: 042
     Dates: start: 20060628, end: 20060630
  2. CYTARABINE [Suspect]
     Indication: ACUTE MYELOID LEUKAEMIA
     Dosage: 210 MG (1 IN 1 D), INTRAVENOUS
     Route: 042
     Dates: start: 20060628, end: 20060701

REACTIONS (2)
  - APLASTIC ANAEMIA [None]
  - HISTIOCYTOSIS HAEMATOPHAGIC [None]
